FAERS Safety Report 6427950-9 (Version None)
Quarter: 2009Q4

REPORT INFORMATION
  Report Type: 
  Country: None (occurrence: None)
  Receive Date: 20091105
  Receipt Date: 20091026
  Transmission Date: 20100525
  Serious: Yes (Other)
  Sender: FDA-Public Use
  Company Number: JP-ROCHE-608368

PATIENT
  Age: 70 Year
  Sex: Male

DRUGS (4)
  1. KYTRIL [Suspect]
     Indication: PROPHYLAXIS OF NAUSEA AND VOMITING
     Dosage: ROUTE: INTRAVENOUS (NOT OTHERWISE SPECIFIED)
     Route: 042
  2. FLUOROURACIL [Concomitant]
     Route: 041
  3. CISPLATIN [Concomitant]
     Route: 041
  4. TAXOTERE [Concomitant]
     Route: 041

REACTIONS (1)
  - CONVULSION [None]
